FAERS Safety Report 17360045 (Version 1)
Quarter: 2020Q1

REPORT INFORMATION
  Report Type: Spontaneous
  Country: NL (occurrence: NL)
  Receive Date: 20200203
  Receipt Date: 20200203
  Transmission Date: 20200409
  Serious: Yes (Life-Threatening, Hospitalization)
  Sender: FDA-Public Use
  Company Number: NL-TEVA-2020-NL-1177494

PATIENT
  Age: 89 Year
  Sex: Male
  Weight: 84 kg

DRUGS (6)
  1. ACENOCOUMAROL [Concomitant]
     Active Substance: ACENOCOUMAROL
  2. COLECALCIFEROL [Concomitant]
     Active Substance: CHOLECALCIFEROL
  3. CIPROFLOXACINE [Suspect]
     Active Substance: CIPROFLOXACIN
     Indication: URINARY TRACT INFECTION
     Dosage: TABLET, 500 MG (MILLIGRAMS), ONE DAY 2DD 500MG, AFTER WORSENING KIDNEY FUNCTION OVER AT 1DD 500 MG F
     Dates: start: 20200106, end: 20200108
  4. FOLIUMZUUR [Concomitant]
     Active Substance: FOLIC ACID
  5. FYTOMENADION [Concomitant]
  6. RIVASTIGMINE. [Concomitant]
     Active Substance: RIVASTIGMINE

REACTIONS (1)
  - Tubulointerstitial nephritis [Unknown]

NARRATIVE: CASE EVENT DATE: 20200107
